FAERS Safety Report 5476120-X (Version None)
Quarter: 2007Q4

REPORT INFORMATION
  Report Type: 
  Country: None (occurrence: None)
  Receive Date: 20071003
  Receipt Date: 20070924
  Transmission Date: 20080405
  Serious: Yes (Hospitalization)
  Sender: FDA-Public Use
  Company Number: US-ELI_LILLY_AND_COMPANY-US200709005427

PATIENT
  Age: 53 Year
  Sex: Male

DRUGS (5)
  1. CYMBALTA [Suspect]
     Dosage: 30 MG, UNK
  2. ALLEGRA [Concomitant]
  3. SYNTHROID [Concomitant]
     Dosage: 15 %, UNK
  4. TRAZODONE HCL [Concomitant]
     Dosage: 100 MG, UNK
  5. LYRICA [Concomitant]
     Dosage: 50 MG, DAILY (1/D)

REACTIONS (2)
  - HIV TEST POSITIVE [None]
  - PHARMACEUTICAL PRODUCT COMPLAINT [None]
